FAERS Safety Report 12186687 (Version 1)
Quarter: 2016Q1

REPORT INFORMATION
  Report Type: Spontaneous
  Country: US (occurrence: None)
  Receive Date: 20160316
  Receipt Date: 20160316
  Transmission Date: 20160526
  Serious: Yes (Hospitalization)
  Sender: FDA-Public Use
  Company Number: None

PATIENT
  Age: 82 Year
  Sex: Male
  Weight: 68.9 kg

DRUGS (1)
  1. WARFARIN [Suspect]
     Active Substance: WARFARIN
     Indication: ATRIAL FIBRILLATION
     Dosage: AT BEDTIME
     Route: 048
     Dates: start: 20090615

REACTIONS (7)
  - Haemoglobin decreased [None]
  - Pneumonia aspiration [None]
  - Gastrointestinal haemorrhage [None]
  - Pneumonia [None]
  - Pulmonary hypertension [None]
  - International normalised ratio increased [None]
  - Pulmonary alveolar haemorrhage [None]

NARRATIVE: CASE EVENT DATE: 20150825
